FAERS Safety Report 9394328 (Version 3)
Quarter: 2013Q3

REPORT INFORMATION
  Report Type: Spontaneous
  Country: JP (occurrence: JP)
  Receive Date: 20130711
  Receipt Date: 20130718
  Transmission Date: 20140515
  Serious: Yes (Hospitalization)
  Sender: FDA-Public Use
  Company Number: JP-AMGEN-JPNSP2013047219

PATIENT
  Age: 51 Year
  Sex: Male

DRUGS (3)
  1. MIMPARA [Suspect]
     Indication: HYPERPARATHYROIDISM SECONDARY
     Dosage: 25 MG, QOD
     Route: 048
  2. WARFARIN [Concomitant]
     Dosage: UNK
     Route: 048
  3. BAYASPIRIN [Concomitant]
     Dosage: UNK
     Route: 048

REACTIONS (1)
  - Renal haemorrhage [Recovered/Resolved]
